FAERS Safety Report 6286914-9 (Version None)
Quarter: 2009Q3

REPORT INFORMATION
  Report Type: 
  Country: None (occurrence: None)
  Receive Date: 20090728
  Receipt Date: 20090717
  Transmission Date: 20100115
  Serious: Yes (Hospitalization, Other)
  Sender: FDA-Public Use
  Company Number: US-JNJFOC-20090706434

PATIENT
  Sex: Female
  Weight: 53.07 kg

DRUGS (6)
  1. REMICADE [Suspect]
     Route: 042
  2. REMICADE [Suspect]
     Dosage: 7 INFUSIONS
     Route: 042
  3. REMICADE [Suspect]
     Dosage: 27 INFUSIONS
     Route: 042
  4. REMICADE [Suspect]
     Indication: CROHN'S DISEASE
     Dosage: 4 INFUSIONS PRIOR TO BASELINE
     Route: 042
  5. AZATHIOPRINE [Concomitant]
     Indication: CROHN'S DISEASE
  6. ANTIDEPRESSANTS [Concomitant]
     Indication: CROHN'S DISEASE

REACTIONS (1)
  - BREAST CANCER STAGE I [None]
